FAERS Safety Report 8090940-7 (Version None)
Quarter: 2012Q1

REPORT INFORMATION
  Report Type: 
  Country: None (occurrence: None)
  Receive Date: 20120128
  Receipt Date: 20110817
  Transmission Date: 20120608
  Serious: No
  Sender: FDA-Public Use
  Company Number: US-ABBOTT-11P-163-0848078-00

PATIENT
  Sex: Female
  Weight: 129.39 kg

DRUGS (11)
  1. METHOTREXATE [Concomitant]
     Indication: PSORIATIC ARTHROPATHY
  2. HUMIRA [Suspect]
     Indication: PSORIATIC ARTHROPATHY
     Dates: start: 20100601, end: 20101201
  3. CLONOPIN [Concomitant]
     Indication: ANXIETY
  4. ACTOS [Concomitant]
     Indication: DIABETES MELLITUS
  5. HUMIRA [Suspect]
     Dates: start: 20110101
  6. LEXAPRO [Concomitant]
     Indication: DEPRESSION
  7. KEPPRA [Concomitant]
     Indication: CONVULSION
  8. DEXILANT [Concomitant]
     Indication: GASTROOESOPHAGEAL REFLUX DISEASE
  9. FENTANYL [Concomitant]
     Indication: PAIN
     Dosage: PATCH
     Route: 062
  10. ABILIFY [Concomitant]
     Indication: PRODUCT USED FOR UNKNOWN INDICATION
  11. PERCOCET [Concomitant]
     Indication: PAIN

REACTIONS (1)
  - PAIN IN EXTREMITY [None]
